FAERS Safety Report 12580803 (Version 2)
Quarter: 2016Q3

REPORT INFORMATION
  Report Type: Report from Study
  Country: US (occurrence: US)
  Receive Date: 20160721
  Receipt Date: 20160808
  Transmission Date: 20161109
  Serious: Yes (Death, Hospitalization)
  Sender: FDA-Public Use
  Company Number: US-BAYER-2016-115576

PATIENT
  Age: 63 Year
  Sex: Female
  Weight: 65.53 kg

DRUGS (4)
  1. LETAIRIS [Concomitant]
     Active Substance: AMBRISENTAN
  2. UPTRAVI [Concomitant]
     Active Substance: SELEXIPAG
  3. OPSUMIT [Concomitant]
     Active Substance: MACITENTAN
  4. ADEMPAS [Suspect]
     Active Substance: RIOCIGUAT
     Indication: PULMONARY ARTERIAL HYPERTENSION
     Dosage: 0.5 MG, TID (LAST SHIPPED 01-JUN-2016)
     Route: 048
     Dates: start: 20160601

REACTIONS (5)
  - Hospitalisation [Unknown]
  - Death [Fatal]
  - Gait disturbance [Unknown]
  - Pruritus [Unknown]
  - Malaise [Unknown]
